FAERS Safety Report 4390168-8 (Version None)
Quarter: 2004Q3

REPORT INFORMATION
  Report Type: 
  Country: None (occurrence: None)
  Receive Date: 20040706
  Receipt Date: 20040519
  Transmission Date: 20050211
  Serious: Yes (Hospitalization)
  Sender: FDA-Public Use
  Company Number: AU-GLAXOSMITHKLINE-B0333405A

PATIENT
  Age: 67 Year
  Sex: Male

DRUGS (11)
  1. AVANDIA [Suspect]
     Dosage: 4MG PER DAY
     Dates: start: 20040319
  2. DILATREND [Concomitant]
     Dosage: 25MG TWICE PER DAY
  3. HYDRALAZINE [Concomitant]
     Dosage: 50MG THREE TIMES PER DAY
  4. IMDUR [Concomitant]
     Dosage: 60MG IN THE MORNING
  5. LANOXIN [Concomitant]
     Dosage: 62.5MCG PER DAY
  6. LASIX [Concomitant]
     Dosage: 500MG PER DAY
  7. LIPITOR [Concomitant]
     Dosage: 10MG PER DAY
  8. MIXTARD HUMAN 70/30 [Concomitant]
  9. PARIET [Concomitant]
     Dosage: 20MG PER DAY
  10. PLAVIX [Concomitant]
     Dosage: 75MG PER DAY
  11. ZYLOPRIM [Concomitant]
     Dosage: 300MG PER DAY

REACTIONS (3)
  - ASCITES [None]
  - CARDIAC FAILURE CONGESTIVE [None]
  - FLUID RETENTION [None]
